FAERS Safety Report 12855875 (Version 1)
Quarter: 2016Q4

REPORT INFORMATION
  Report Type: Spontaneous
  Country: DE (occurrence: None)
  Receive Date: 20161014
  Receipt Date: 20161014
  Transmission Date: 20170207
  Serious: Yes (Hospitalization)
  Sender: FDA-Public Use
  Company Number: DE2015K6814SPO

PATIENT
  Age: 13 Year
  Sex: Female
  Weight: 35 kg

DRUGS (7)
  1. METOPROLOL WORLD (METOPROLOL) UNKNOWN, 95 MG [Suspect]
     Active Substance: METOPROLOL
     Dosage: TOTAL: 760 MG/ QUESTIONABLE; ORAL
     Route: 048
  2. CORITEO 20 MG (LERCANIDIPINE) TABLET, 20 MG [Suspect]
     Active Substance: LERCANIDIPINE
     Dosage: 20 MG/ QUESTIONABLE; ORAL
     Route: 048
  3. CORVO (ENALAPRIL) TABLET, 20 MG [Suspect]
     Active Substance: ENALAPRIL MALEATE
     Dosage: TOTAL: 20 MG/ QUESTIONABLE ORAL
     Route: 048
  4. SIMVASTATIN GENERIC (SIMVASTATIN) [Suspect]
     Active Substance: SIMVASTATIN
     Route: 048
  5. ASS 100 (ACETYLSALICYLIC ACID) 100 MG [Suspect]
     Active Substance: ASPIRIN
     Route: 048
  6. ALLOPURINOL. [Suspect]
     Active Substance: ALLOPURINOL
     Indication: PRODUCT USED FOR UNKNOWN INDICATION
     Route: 048
  7. TORASEMID 10 (TORASEMIDE) TABLET, 10 MG [Suspect]
     Active Substance: TORSEMIDE
     Dosage: TOTAL: 80 MG/ QUESTIONABLE; ORAL
     Route: 048

REACTIONS (4)
  - Diastolic hypertension [None]
  - Tachycardia [None]
  - Suicide attempt [None]
  - Intentional overdose [None]

NARRATIVE: CASE EVENT DATE: 20151101
